FAERS Safety Report 9363302 (Version 1)
Quarter: 2013Q2

REPORT INFORMATION
  Report Type: Spontaneous
  Country: US (occurrence: None)
  Receive Date: 20130621
  Receipt Date: 20130621
  Transmission Date: 20140414
  Serious: Yes (Life-Threatening, Hospitalization)
  Sender: FDA-Public Use
  Company Number: None

PATIENT
  Age: 69 Year
  Sex: Female
  Weight: 99.8 kg

DRUGS (1)
  1. XARELTO [Suspect]

REACTIONS (4)
  - Respiratory arrest [None]
  - Unresponsive to stimuli [None]
  - Hypotension [None]
  - Post procedural pulmonary embolism [None]
